FAERS Safety Report 9659093 (Version 1)
Quarter: 2013Q4

REPORT INFORMATION
  Report Type: Spontaneous
  Country: US (occurrence: US)
  Receive Date: 20131031
  Receipt Date: 20131031
  Transmission Date: 20140711
  Serious: No
  Sender: FDA-Public Use
  Company Number: US-BIOGENIDEC-2013BI099619

PATIENT
  Age: 36 Year
  Sex: Female

DRUGS (5)
  1. AVONEX [Suspect]
     Indication: MULTIPLE SCLEROSIS
     Route: 030
     Dates: start: 199902
  2. AVONEX [Suspect]
     Indication: MULTIPLE SCLEROSIS
     Route: 030
     Dates: start: 2005
  3. DACLIZUMAB [Concomitant]
     Indication: CENTRAL NERVOUS SYSTEM LESION
     Route: 042
     Dates: start: 200210, end: 200312
  4. GLATIRAMER ACETATE [Concomitant]
     Indication: MULTIPLE SCLEROSIS
     Dates: start: 200406
  5. METHYLPREDNISOLONE [Concomitant]
     Indication: MULTIPLE SCLEROSIS
     Route: 042

REACTIONS (3)
  - Aphasia [Unknown]
  - Muscular weakness [Unknown]
  - Central nervous system lesion [Unknown]
